FAERS Safety Report 24125202 (Version 1)
Quarter: 2024Q3

REPORT INFORMATION
  Report Type: Report from Study
  Country: US (occurrence: None)
  Receive Date: 20240723
  Receipt Date: 20240723
  Transmission Date: 20241017
  Serious: Yes (Other)
  Sender: ASTRAZENECA
  Company Number: 2023A124100

PATIENT
  Sex: Female

DRUGS (1)
  1. CALQUENCE [Suspect]
     Active Substance: ACALABRUTINIB
     Indication: Breast cancer
     Route: 048
     Dates: start: 20221116

REACTIONS (3)
  - Leukaemia [Unknown]
  - Liver disorder [Unknown]
  - Pruritus [Unknown]
